FAERS Safety Report 7583714-4 (Version None)
Quarter: 2011Q2

REPORT INFORMATION
  Report Type: 
  Country: None (occurrence: None)
  Receive Date: 20110630
  Receipt Date: 20110621
  Transmission Date: 20111010
  Serious: Yes (Hospitalization)
  Sender: FDA-Public Use
  Company Number: B0728912A

PATIENT
  Sex: Male

DRUGS (7)
  1. POTASSIUM CHLORIDE [Concomitant]
     Dosage: 600MG TWICE PER DAY
  2. LORAZEPAM [Concomitant]
     Dosage: 2.5MG PER DAY
  3. MADOPAR [Concomitant]
  4. CLONAZEPAM [Concomitant]
     Dosage: 40DROP PER DAY
  5. PROTEIN SUPPLEMENT [Concomitant]
  6. CEFTAZIDIME [Suspect]
     Indication: URINARY TRACT INFECTION
     Dosage: 2G PER DAY
     Route: 030
     Dates: start: 20110609, end: 20110619
  7. PRAMIPEXOLE DIHYCHLLORIDE [Concomitant]

REACTIONS (5)
  - HYPERHIDROSIS [None]
  - TREMOR [None]
  - RASH ERYTHEMATOUS [None]
  - RESPIRATORY DISORDER [None]
  - DYSPNOEA [None]
